FAERS Safety Report 25052862 (Version 1)
Quarter: 2025Q1

REPORT INFORMATION
  Report Type: Spontaneous
  Country: US (occurrence: US)
  Receive Date: 20250307
  Receipt Date: 20250307
  Transmission Date: 20250408
  Serious: No
  Sender: SANOFI AVENTIS
  Company Number: US-SA-2025SA066030

PATIENT
  Age: 21 Year
  Sex: Female
  Weight: 53.64 kg

DRUGS (14)
  1. DUPIXENT [Suspect]
     Active Substance: DUPILUMAB
     Indication: Dermatitis atopic
     Dosage: 300 MG, QOW
     Route: 058
     Dates: start: 20241023, end: 20250212
  2. TACROLIMUS [Concomitant]
     Active Substance: TACROLIMUS
  3. MIRENA [Concomitant]
     Active Substance: LEVONORGESTREL
  4. ZORYVE [Concomitant]
     Active Substance: ROFLUMILAST
  5. AMOXICILLIN\CLAVULANATE POTASSIUM [Concomitant]
     Active Substance: AMOXICILLIN\CLAVULANATE POTASSIUM
  6. ACETAMINOPHEN\HYDROCODONE [Concomitant]
     Active Substance: ACETAMINOPHEN\HYDROCODONE
  7. AMOXICILLIN [Concomitant]
     Active Substance: AMOXICILLIN
  8. KETOCONAZOLE [Concomitant]
     Active Substance: KETOCONAZOLE
  9. CLOBETASOL PROPIONATE [Concomitant]
     Active Substance: CLOBETASOL PROPIONATE
  10. AZELAIC ACID [Concomitant]
     Active Substance: AZELAIC ACID
  11. CLINDAMYCIN PHOSPHATE [Concomitant]
     Active Substance: CLINDAMYCIN PHOSPHATE
  12. TOBRAMYCIN [Concomitant]
     Active Substance: TOBRAMYCIN
  13. FLUCONAZOLE [Concomitant]
     Active Substance: FLUCONAZOLE
  14. METRONIDAZOLE [Concomitant]
     Active Substance: METRONIDAZOLE

REACTIONS (1)
  - Lacrimation increased [Not Recovered/Not Resolved]

NARRATIVE: CASE EVENT DATE: 20241001
